FAERS Safety Report 8090873-6 (Version None)
Quarter: 2012Q1

REPORT INFORMATION
  Report Type: 
  Country: None (occurrence: None)
  Receive Date: 20120131
  Receipt Date: 20120124
  Transmission Date: 20120608
  Serious: Yes (Hospitalization)
  Sender: FDA-Public Use
  Company Number: US-JNJFOC-20120111743

PATIENT
  Sex: Female
  Weight: 99.79 kg

DRUGS (4)
  1. UNKNOWN MULTIPLE MEDICATION [Concomitant]
     Route: 065
  2. FENTANYL-100 [Suspect]
     Indication: ABDOMINAL PAIN
     Dosage: NDC 0781 7244 55
     Route: 062
     Dates: start: 20110901
  3. FENTANYL-100 [Suspect]
     Indication: CYCLIC VOMITING SYNDROME
     Dosage: NDC 0781 7244 55
     Route: 062
     Dates: start: 20110901
  4. FENTANYL-100 [Suspect]
     Indication: PORPHYRIA
     Dosage: NDC 0781 7244 55
     Route: 062
     Dates: start: 20110901

REACTIONS (4)
  - PORPHYRIA [None]
  - DRUG PRESCRIBING ERROR [None]
  - PRODUCT QUALITY ISSUE [None]
  - WRONG TECHNIQUE IN DRUG USAGE PROCESS [None]
